FAERS Safety Report 4736646-0 (Version None)
Quarter: 2005Q3

REPORT INFORMATION
  Report Type: 
  Country: None (occurrence: None)
  Receive Date: 20050808
  Receipt Date: 20050726
  Transmission Date: 20060218
  Serious: No
  Sender: FDA-Public Use
  Company Number: 2005AP04216

PATIENT
  Sex: Female

DRUGS (3)
  1. SEROQUEL [Suspect]
     Route: 048
     Dates: start: 20001115, end: 20020919
  2. EPILIM [Concomitant]
     Route: 048
  3. OXAZEPAM [Concomitant]
     Route: 048

REACTIONS (1)
  - NEUTROPENIA [None]
